FAERS Safety Report 25014893 (Version 3)
Quarter: 2025Q4

REPORT INFORMATION
  Report Type: Report from Study
  Country: CA (occurrence: CA)
  Receive Date: 20250226
  Receipt Date: 20251015
  Transmission Date: 20260117
  Serious: Yes (Other)
  Sender: SANDOZ
  Company Number: CA-SANDOZ-SDZ2023CA044461

PATIENT
  Sex: Male

DRUGS (1)
  1. HYRIMOZ [Suspect]
     Active Substance: ADALIMUMAB-ADAZ
     Indication: Ankylosing spondylitis
     Dosage: 40 MG, Q2W
     Route: 058
     Dates: start: 20220531

REACTIONS (9)
  - Ankylosing spondylitis [Unknown]
  - Gastrointestinal surgery [Unknown]
  - Haematochezia [Unknown]
  - General physical health deterioration [Unknown]
  - Decreased appetite [Unknown]
  - Peripheral swelling [Unknown]
  - Arthralgia [Unknown]
  - Pain in extremity [Unknown]
  - Abdominal pain [Unknown]
